FAERS Safety Report 14841589 (Version 1)
Quarter: 2018Q2

REPORT INFORMATION
  Report Type: Spontaneous
  Country: US (occurrence: US)
  Receive Date: 20180418
  Receipt Date: 20180418
  Transmission Date: 20180711
  Serious: Yes (Hospitalization)
  Sender: FDA-Public Use
  Company Number: None

PATIENT
  Age: 56 Year
  Sex: Female

DRUGS (15)
  1. POT CHLORIDE [Concomitant]
     Active Substance: POTASSIUM CHLORIDE
  2. HYDROCO/APAP [Concomitant]
     Active Substance: ACETAMINOPHEN\HYDROCODONE
  3. TEMAZEPAM. [Concomitant]
     Active Substance: TEMAZEPAM
  4. FLUROCORT [Concomitant]
  5. DRONABINOL. [Concomitant]
     Active Substance: DRONABINOL
  6. LIDO/PRILOSCN CR [Concomitant]
  7. DULOXETINE. [Concomitant]
     Active Substance: DULOXETINE
  8. SYNTHROID [Concomitant]
     Active Substance: LEVOTHYROXINE SODIUM
  9. CITALOPRAM [Concomitant]
     Active Substance: CITALOPRAM HYDROBROMIDE
  10. ONDANSETRON [Concomitant]
     Active Substance: ONDANSETRON
  11. LOPERAMIDE [Concomitant]
     Active Substance: LOPERAMIDE
  12. CAPECITABINE 500MG TAB [Suspect]
     Active Substance: CAPECITABINE
     Indication: SMALL INTESTINE CARCINOMA
     Dosage: 3 TAB (1500MG) QD X 14 BID PO?DAYS 1-14
     Route: 048
     Dates: start: 201803, end: 201804
  13. PRILOSEC [Concomitant]
     Active Substance: OMEPRAZOLE MAGNESIUM
  14. LORAZEPAM. [Concomitant]
     Active Substance: LORAZEPAM
  15. DIPHEN/ATROP [Concomitant]
     Active Substance: ATROPINE SULFATE\DIPHENOXYLATE

REACTIONS (2)
  - Dehydration [None]
  - Mucosal inflammation [None]
